FAERS Safety Report 6759537-2 (Version None)
Quarter: 2010Q2

REPORT INFORMATION
  Report Type: 
  Country: None (occurrence: None)
  Receive Date: 20100604
  Receipt Date: 20100521
  Transmission Date: 20101027
  Serious: Yes (Other)
  Sender: FDA-Public Use
  Company Number: 7005821

PATIENT
  Age: 44 Year
  Sex: Male
  Weight: 130 kg

DRUGS (2)
  1. NOVANTRONE [Suspect]
     Indication: MULTIPLE SCLEROSIS
     Dosage: 1 IN 3 M, INTRAVENOUS
     Route: 042
     Dates: start: 20070831, end: 20090801
  2. COPAXONE [Suspect]
     Dates: end: 20100518

REACTIONS (1)
  - ACUTE MYELOID LEUKAEMIA [None]
